FAERS Safety Report 13463759 (Version 1)
Quarter: 2017Q2

REPORT INFORMATION
  Report Type: Spontaneous
  Country: US (occurrence: US)
  Receive Date: 20170420
  Receipt Date: 20170420
  Transmission Date: 20170830
  Serious: Yes (Hospitalization, Other)
  Sender: FDA-Public Use
  Company Number: US-ROCHE-652510

PATIENT
  Age: 21 Year
  Sex: Male
  Weight: 99.8 kg

DRUGS (4)
  1. TRIAZ [Concomitant]
     Active Substance: BENZOYL PEROXIDE
     Indication: ACNE
     Route: 065
  2. DIFFERIN GEL [Concomitant]
     Active Substance: ADAPALENE
     Indication: ACNE
     Route: 065
  3. ERYTHROMYCIN. [Concomitant]
     Active Substance: ERYTHROMYCIN
     Indication: ACNE
     Dosage: DRUG NAME: ERY-C
     Route: 065
  4. ACCUTANE [Suspect]
     Active Substance: ISOTRETINOIN
     Indication: ACNE
     Route: 048
     Dates: start: 20030910, end: 20040208

REACTIONS (8)
  - Dry skin [Unknown]
  - Inflammatory bowel disease [Unknown]
  - Depression [Unknown]
  - Blood cholesterol increased [Unknown]
  - Crohn^s disease [Unknown]
  - Nasal dryness [Unknown]
  - Colitis ulcerative [Unknown]
  - Lip dry [Unknown]

NARRATIVE: CASE EVENT DATE: 20031010
